FAERS Safety Report 6143225-X (Version None)
Quarter: 2009Q2

REPORT INFORMATION
  Report Type: 
  Country: None (occurrence: None)
  Receive Date: 20090403
  Receipt Date: 20090330
  Transmission Date: 20091009
  Serious: Yes (Hospitalization, Other)
  Sender: FDA-Public Use
  Company Number: US-BAYER-200914530NA

PATIENT
  Age: 58 Year
  Sex: Female
  Weight: 63 kg

DRUGS (5)
  1. ULTRAVIST 300 [Suspect]
     Indication: COMPUTERISED TOMOGRAM ABDOMEN
     Dosage: TOTAL DAILY DOSE: 100 ML  UNIT DOSE: 100 ML
     Route: 042
     Dates: start: 20090303, end: 20090303
  2. PREDNISONE [Concomitant]
     Indication: PREMEDICATION
     Dosage: AS USED: 50  MG
     Dates: start: 20090302, end: 20090302
  3. PREDNISONE [Concomitant]
     Dosage: AS USED: 50 MG
     Dates: start: 20090303, end: 20090303
  4. BENADRYL [Concomitant]
     Indication: PREMEDICATION
     Dosage: AS USED: 50 MG
     Dates: start: 20090303, end: 20090303
  5. READICAT [Concomitant]
     Indication: COMPUTERISED TOMOGRAM ABDOMEN
     Dosage: AS USED: 900 ML
     Route: 048
     Dates: start: 20090303, end: 20090303

REACTIONS (3)
  - DYSPNOEA [None]
  - EYE SWELLING [None]
  - SNEEZING [None]
